FAERS Safety Report 16451341 (Version 4)
Quarter: 2022Q4

REPORT INFORMATION
  Report Type: Spontaneous
  Country: US (occurrence: US)
  Receive Date: 20190619
  Receipt Date: 20221213
  Transmission Date: 20230113
  Serious: Yes (Other)
  Sender: FDA-Public Use
  Company Number: US-PFIZER INC-2019254582

PATIENT
  Age: 63 Year
  Sex: Female
  Weight: 70.31 kg

DRUGS (1)
  1. XELJANZ XR [Suspect]
     Active Substance: TOFACITINIB CITRATE
     Indication: Rheumatoid arthritis
     Dosage: 11 MG, ONCE A DAY
     Route: 048

REACTIONS (4)
  - Malignant melanoma [Unknown]
  - Pain [Unknown]
  - Muscle strain [Unknown]
  - Gastrooesophageal reflux disease [Unknown]
